FAERS Safety Report 8587037-6 (Version None)
Quarter: 2012Q3

REPORT INFORMATION
  Report Type: 
  Country: None (occurrence: None)
  Receive Date: 20120810
  Receipt Date: 20120718
  Transmission Date: 20120928
  Serious: Yes (Other)
  Sender: FDA-Public Use
  Company Number: JP-009507513-1207JPN000021

PATIENT

DRUGS (20)
  1. TELAVIC [Suspect]
     Indication: HEPATITIS C
     Dosage: 2250 MG, ONCE
     Route: 048
     Dates: start: 20120404, end: 20120529
  2. LENDORMIN [Concomitant]
     Dosage: 0.25 MG, ONCE
     Route: 048
  3. REBETOL [Suspect]
     Dosage: 200 MG, ONCE
     Route: 048
     Dates: start: 20120523, end: 20120531
  4. REBETOL [Suspect]
     Dosage: 400 MG, QD
     Dates: start: 20120509
  5. TELAVIC [Suspect]
     Dosage: 1500 MG, ONCE
     Route: 048
     Dates: start: 20120530, end: 20120531
  6. EPINASTINE HYDROCHLORIDE [Concomitant]
     Indication: SEASONAL ALLERGY
     Dosage: 20 MG, ONCE
     Route: 048
     Dates: start: 20120509
  7. PEG-INTRON [Suspect]
     Indication: HEPATITIS C
     Dosage: 1.5 MICROGRAM PER KILOGRAM, QW
     Route: 058
     Dates: start: 20120404
  8. PEG-INTRON [Suspect]
     Dosage: 1.5MCG/KG/WEEK
     Route: 058
     Dates: start: 20120404, end: 20120530
  9. REBETOL [Suspect]
     Indication: HEPATITIS C
     Dosage: 600 MG, QD
     Route: 048
     Dates: start: 20120404, end: 20120508
  10. WARFARIN SODIUM [Concomitant]
     Indication: ATRIAL FIBRILLATION
     Dosage: 2.5 MG, ONCE
     Route: 048
  11. DIGOXIN [Concomitant]
     Indication: ATRIAL FIBRILLATION
     Dosage: 0.125 MG, ONCE
     Route: 048
  12. DIGOXIN [Concomitant]
     Dosage: 0.125 MG, ONCE
     Route: 048
  13. XYZAL [Concomitant]
     Dosage: 5 MG, ONCE
     Route: 048
  14. SELBEX [Concomitant]
     Indication: GASTRITIS
     Route: 048
  15. SELBEX [Concomitant]
     Dosage: 150 MG, ONCE
     Route: 048
     Dates: end: 20120508
  16. FAMOTIDINE [Concomitant]
     Indication: GASTRITIS
     Dosage: 20 MG, ONCE
     Route: 048
     Dates: start: 20120425
  17. WARFARIN SODIUM [Concomitant]
     Dosage: 2.5 MG, ONCE
     Route: 048
  18. XYZAL [Concomitant]
     Indication: SEASONAL ALLERGY
     Dosage: 5 MG, ONCE
     Route: 048
  19. REBETOL [Suspect]
     Dosage: 400 MG, ONCE
     Route: 048
     Dates: start: 20120509, end: 20120522
  20. LENDORMIN [Concomitant]
     Indication: INSOMNIA
     Dosage: 0.25 MG, ONCE
     Route: 048

REACTIONS (3)
  - PHOTOPHOBIA [None]
  - OPTIC NERVE DISORDER [None]
  - ANAEMIA [None]
